FAERS Safety Report 4575488-6 (Version None)
Quarter: 2005Q1

REPORT INFORMATION
  Report Type: 
  Country: None (occurrence: None)
  Receive Date: 20050209
  Receipt Date: 20050128
  Transmission Date: 20050727
  Serious: Yes (Hospitalization)
  Sender: FDA-Public Use
  Company Number: SE-NOVOPROD-241943

PATIENT
  Age: 14 Year
  Sex: Female
  Weight: 54 kg

DRUGS (1)
  1. NORDITROPIN SIMPLEXX [Suspect]
     Indication: ILL-DEFINED DISORDER
     Dosage: 11.9 MG, PR.WEEK SPLIT IN 7 INJ.
     Dates: start: 20041016, end: 20041017

REACTIONS (1)
  - ALCOHOL POISONING [None]
